FAERS Safety Report 23020278 (Version 1)
Quarter: 2023Q4

REPORT INFORMATION
  Report Type: Spontaneous
  Country: US (occurrence: US)
  Receive Date: 20231003
  Receipt Date: 20231003
  Transmission Date: 20240109
  Serious: No
  Sender: FDA-Public Use
  Company Number: US-CIPLA LTD.-2023US05460

PATIENT

DRUGS (4)
  1. ESCITALOPRAM [Suspect]
     Active Substance: ESCITALOPRAM OXALATE
     Indication: Anxiety
     Dosage: 5 MILLIGRAM (1 TABLET), QD (ONCE AT NIGHT)
     Route: 048
     Dates: start: 202112
  2. ESCITALOPRAM [Suspect]
     Active Substance: ESCITALOPRAM OXALATE
     Dosage: 10 MILLIGRAM, QD (ONCE AT NIGHT)
     Route: 048
  3. ESCITALOPRAM [Suspect]
     Active Substance: ESCITALOPRAM OXALATE
     Dosage: 5 MILLIGRAM (1 TABLET), QD (ONCE AT NIGHT)
     Route: 048
     Dates: start: 202307, end: 20230901
  4. NALTREXONE [Concomitant]
     Active Substance: NALTREXONE
     Indication: Inflammation
     Dosage: 3 MILLIGRAM (1 TABLET)/AS NEEDED
     Route: 065
     Dates: start: 202111

REACTIONS (7)
  - Adverse drug reaction [Recovering/Resolving]
  - Illness [Recovering/Resolving]
  - Intentional product use issue [Unknown]
  - Product quality issue [Unknown]
  - Abdominal pain upper [Recovering/Resolving]
  - Vomiting [Recovering/Resolving]
  - Nausea [Recovering/Resolving]

NARRATIVE: CASE EVENT DATE: 20230101
